FAERS Safety Report 10158205 (Version 2)
Quarter: 2014Q2

REPORT INFORMATION
  Report Type: Spontaneous
  Country: US (occurrence: US)
  Receive Date: 20140507
  Receipt Date: 20140522
  Transmission Date: 20141212
  Serious: Yes (Other)
  Sender: FDA-Public Use
  Company Number: PHEH2014US007814

PATIENT
  Sex: Female
  Weight: 55.78 kg

DRUGS (13)
  1. TASIGNA [Suspect]
     Indication: CHRONIC MYELOID LEUKAEMIA
     Dosage: 400 MG, BID
     Dates: start: 20140223
  2. METFORMIN [Suspect]
     Indication: TYPE 2 DIABETES MELLITUS
     Dosage: 500 MG, BID
     Dates: start: 200912
  3. METFORMIN [Suspect]
     Dosage: 1000 MG, BID
     Dates: start: 201403
  4. METFORMIN [Suspect]
     Dosage: 500 MG, BID
  5. GLIPIZIDE [Suspect]
     Indication: TYPE 2 DIABETES MELLITUS
     Dosage: 10 MG, BID
  6. ONGLYZA [Suspect]
     Indication: TYPE 2 DIABETES MELLITUS
     Dosage: UNK
     Dates: start: 201404
  7. BONIVA [Concomitant]
     Indication: OSTEOPOROSIS
     Dosage: ONCE MONTHLY
  8. LEVOTHYROXIN [Concomitant]
     Indication: HYPOTHYROIDISM
     Dosage: 75 UG, QD
  9. LOVASTATIN [Concomitant]
     Dosage: 20 MG, QD
  10. CALCIUM [Concomitant]
  11. OMEGA 3 FISH OIL [Concomitant]
  12. BIOTIN [Concomitant]
  13. COQ10 [Concomitant]
     Dosage: 200 MG, QD

REACTIONS (8)
  - Blood glucose increased [Not Recovered/Not Resolved]
  - Urine odour abnormal [Unknown]
  - Liver disorder [Unknown]
  - Nausea [Not Recovered/Not Resolved]
  - Pain of skin [Recovering/Resolving]
  - Rash generalised [Not Recovered/Not Resolved]
  - Rash [Unknown]
  - Chromaturia [Unknown]
